FAERS Safety Report 14907112 (Version 2)
Quarter: 2018Q2

REPORT INFORMATION
  Report Type: Spontaneous
  Country: CZ (occurrence: CZ)
  Receive Date: 20180517
  Receipt Date: 20180530
  Transmission Date: 20180711
  Serious: Yes (Hospitalization)
  Sender: FDA-Public Use
  Company Number: CZ-TEVA-2018-CZ-891931

PATIENT
  Age: 30 Year
  Sex: Female

DRUGS (5)
  1. LITHIUM. [Concomitant]
     Active Substance: LITHIUM
     Dosage: DOSE WAS INCREASED BACK TO 1200 MG/DAY
     Route: 065
  2. QUETIAPINE. [Interacting]
     Active Substance: QUETIAPINE
     Indication: BIPOLAR DISORDER
  3. LITHIUM. [Concomitant]
     Active Substance: LITHIUM
     Indication: BIPOLAR DISORDER
     Dosage: DOSE WAS REDUCED TO 900 MG/DAY
     Route: 065
  4. CARBAMAZEPINE. [Interacting]
     Active Substance: CARBAMAZEPINE
     Indication: BIPOLAR DISORDER
     Route: 065
  5. QUETIAPINE. [Suspect]
     Active Substance: QUETIAPINE
     Indication: MANIA
     Dosage: SIXTEEN DAYS AFTER CARBAMAZEPINE WITHDRAWAL, DOSE WAS REDUCED TO 600 MG/DAY
     Route: 065

REACTIONS (3)
  - Drug interaction [Recovered/Resolved]
  - Sedation [Unknown]
  - Antipsychotic drug level decreased [Recovered/Resolved]
